FAERS Safety Report 16400872 (Version 2)
Quarter: 2019Q3

REPORT INFORMATION
  Report Type: Spontaneous
  Country: PL (occurrence: PL)
  Receive Date: 20190606
  Receipt Date: 20190801
  Transmission Date: 20191004
  Serious: Yes (Hospitalization)
  Sender: FDA-Public Use
  Company Number: PL-ELI_LILLY_AND_COMPANY-PL201906001480

PATIENT
  Age: 86 Year
  Sex: Female

DRUGS (3)
  1. INSULIN HUMAN [Suspect]
     Active Substance: INSULIN HUMAN
     Indication: PRODUCT USED FOR UNKNOWN INDICATION
     Dosage: 24 INTERNATIONAL UNIT, OTHER (BEFORE BREAKFAST)
  2. INSULIN HUMAN [Suspect]
     Active Substance: INSULIN HUMAN
     Dosage: 20 INTERNATIONAL UNIT, OTHER (BEFORE SUPPER)
  3. METFORMIN [Concomitant]
     Active Substance: METFORMIN HYDROCHLORIDE
     Indication: PRODUCT USED FOR UNKNOWN INDICATION
     Route: 065

REACTIONS (6)
  - Diabetic metabolic decompensation [Recovered/Resolved]
  - Blood creatinine increased [Recovered/Resolved]
  - Metabolic acidosis [Recovered/Resolved]
  - Blood urea increased [Recovered/Resolved]
  - Ketonuria [Recovered/Resolved]
  - Proteinuria [Recovered/Resolved]
